FAERS Safety Report 21915835 (Version 1)
Quarter: 2023Q1

REPORT INFORMATION
  Report Type: Spontaneous
  Country: CA (occurrence: CA)
  Receive Date: 20230126
  Receipt Date: 20230126
  Transmission Date: 20230417
  Serious: Yes (Other)
  Sender: FDA-Public Use
  Company Number: CA-PFIZER INC-202300034053

PATIENT
  Age: 17 Year
  Sex: Female
  Weight: 140 kg

DRUGS (1)
  1. METHOTREXATE SODIUM [Suspect]
     Active Substance: METHOTREXATE SODIUM
     Dosage: MTX 1/WK 2.5X6
     Dates: end: 20230104

REACTIONS (2)
  - Dermatitis atopic [Unknown]
  - Insomnia [Unknown]
